FAERS Safety Report 14241201 (Version 1)
Quarter: 2017Q4

REPORT INFORMATION
  Report Type: Spontaneous
  Country: US (occurrence: US)
  Receive Date: 20171130
  Receipt Date: 20171130
  Transmission Date: 20180321
  Serious: No
  Sender: FDA-Public Use
  Company Number: US-HERITAGE PHARMACEUTICALS-2017HTG00354

PATIENT
  Sex: Female

DRUGS (1)
  1. BUPROPION HYDROCHLORIDE. [Suspect]
     Active Substance: BUPROPION HYDROCHLORIDE

REACTIONS (1)
  - Abdominal discomfort [Unknown]
